FAERS Safety Report 8378885-6 (Version None)
Quarter: 2012Q2

REPORT INFORMATION
  Report Type: 
  Country: None (occurrence: None)
  Receive Date: 20120522
  Receipt Date: 20120522
  Transmission Date: 20120825
  Serious: Yes (Disabling, Other)
  Sender: FDA-Public Use
  Company Number: None

PATIENT
  Sex: Male
  Weight: 95.2554 kg

DRUGS (1)
  1. PROPECIA [Suspect]
     Dosage: 10 MG DAILY PO
     Route: 048
     Dates: start: 20040128, end: 20110101

REACTIONS (4)
  - LOSS OF LIBIDO [None]
  - PENILE SIZE REDUCED [None]
  - ERECTILE DYSFUNCTION [None]
  - PEYRONIE'S DISEASE [None]
